FAERS Safety Report 4828088-4 (Version None)
Quarter: 2005Q4

REPORT INFORMATION
  Report Type: 
  Country: None (occurrence: None)
  Receive Date: 20051110
  Receipt Date: 20051103
  Transmission Date: 20060501
  Serious: Yes (Hospitalization)
  Sender: FDA-Public Use
  Company Number: 200510704BNE

PATIENT
  Age: 61 Year
  Sex: Female

DRUGS (5)
  1. MOXIFLOXACIN [Suspect]
     Indication: BRONCHITIS ACUTE
     Dosage: 400 MG, TOTAL DAILY, ORAL
     Route: 048
     Dates: start: 20050926, end: 20051002
  2. SERETIDE MITE [Concomitant]
  3. THEOPHYLLINE [Concomitant]
  4. CETIRIZINE HCL [Concomitant]
  5. COMBIVENT [Concomitant]

REACTIONS (2)
  - CLOSTRIDIAL INFECTION [None]
  - DIARRHOEA HAEMORRHAGIC [None]
